FAERS Safety Report 9067370 (Version 1)
Quarter: 2013Q1

REPORT INFORMATION
  Report Type: Spontaneous
  Country: US (occurrence: US)
  Receive Date: 20130206
  Receipt Date: 20130206
  Transmission Date: 20140127
  Serious: Yes (Hospitalization)
  Sender: FDA-Public Use
  Company Number: US-BAYER-2013-015107

PATIENT
  Age: 25 Year
  Sex: Female
  Weight: 106 kg

DRUGS (6)
  1. YASMIN [Suspect]
  2. CEPHALEXIN [Concomitant]
     Dosage: 500 MG, UNK
  3. PROPO-N/APAP [Concomitant]
     Dosage: 8 MG, UNK
  4. MOTRIN [Concomitant]
     Dosage: 600 MG, UNK
  5. PERCOCET [OXYCODONE HYDROCHLORIDE,PARACETAMOL] [Concomitant]
  6. ONDANSETRON [Concomitant]
     Dosage: 8 MG, UNK

REACTIONS (2)
  - Deep vein thrombosis [None]
  - Pulmonary embolism [None]
